FAERS Safety Report 8075516-X (Version None)
Quarter: 2012Q1

REPORT INFORMATION
  Report Type: 
  Country: None (occurrence: None)
  Receive Date: 20120127
  Receipt Date: 20120119
  Transmission Date: 20120608
  Serious: Yes (Hospitalization)
  Sender: FDA-Public Use
  Company Number: US-BAYER-2012-006923

PATIENT
  Age: 34 Year
  Sex: Female
  Weight: 52.154 kg

DRUGS (8)
  1. PAXIL [Concomitant]
     Indication: ANXIETY
     Dosage: UNK UNK, QD
     Dates: start: 20030101, end: 20090101
  2. ALBUTEROL [Concomitant]
     Dosage: UNK
     Dates: start: 19980101
  3. IBUPROFEN [Concomitant]
     Dosage: UNK
     Dates: start: 20031101
  4. MOTRIN [Concomitant]
     Indication: HEADACHE
     Dosage: UNK UNK, BID
     Dates: start: 19800101
  5. YASMIN [Suspect]
     Indication: CONTRACEPTION
     Dosage: UNK
     Route: 048
     Dates: start: 20020401, end: 20031101
  6. AMBIEN [Concomitant]
     Indication: SLEEP DISORDER THERAPY
     Dosage: UNK UNK, QD
     Dates: start: 20030101, end: 20100101
  7. YASMIN [Suspect]
     Indication: ACNE
  8. NAPROXEN [Concomitant]
     Indication: HEADACHE
     Dosage: UNK UNK, BID
     Dates: start: 19800101

REACTIONS (5)
  - CHOLELITHIASIS [None]
  - GALLBLADDER DISORDER [None]
  - CHOLECYSTITIS CHRONIC [None]
  - ABDOMINAL PAIN UPPER [None]
  - DYSPEPSIA [None]
